FAERS Safety Report 17256254 (Version 3)
Quarter: 2020Q4

REPORT INFORMATION
  Report Type: Report from Study
  Country: PL (occurrence: PL)
  Receive Date: 20200110
  Receipt Date: 20201102
  Transmission Date: 20210113
  Serious: Yes (Hospitalization)
  Sender: FDA-Public Use
  Company Number: PL-ROCHE-2323414

PATIENT
  Age: 62 Year
  Sex: Female
  Weight: 108 kg

DRUGS (74)
  1. DOXORUBICIN [Suspect]
     Active Substance: DOXORUBICIN
     Indication: DIFFUSE LARGE B-CELL LYMPHOMA
     Dosage: AT 50 MG/M^2 IV ON DAY 1 ?DATE OF MOST RECENT DOSE OF DOXORUBICIN (114.0 MG) PRIOR TO SAE ONSET WAS
     Route: 042
     Dates: start: 20190411
  2. PARACETAMOLUM [Concomitant]
     Active Substance: ACETAMINOPHEN
     Route: 048
     Dates: start: 20190430, end: 20190430
  3. CLEMASTINUM [Concomitant]
     Active Substance: CLEMASTINE FUMARATE
     Route: 042
     Dates: start: 20190611, end: 20190611
  4. DEXAVEN [Concomitant]
     Active Substance: DEXAMETHASONE
     Route: 042
     Dates: start: 20190611, end: 20190611
  5. BISEPTOL [Concomitant]
     Active Substance: SULFAMETHOXAZOLE\TRIMETHOPRIM
     Indication: INFECTION PROPHYLAXIS
     Route: 047
     Dates: start: 20190410
  6. ZOFRAN [Concomitant]
     Active Substance: ONDANSETRON HYDROCHLORIDE
     Indication: PROPHYLAXIS OF NAUSEA AND VOMITING
     Route: 042
     Dates: start: 20190410, end: 20190411
  7. SALINE [SODIUM CHLORIDE] [Concomitant]
     Active Substance: SODIUM CHLORIDE
     Route: 042
     Dates: start: 20190521, end: 20190521
  8. ALLOPURINOLUM [Concomitant]
     Indication: HYPERURICAEMIA
     Route: 048
     Dates: start: 20190430, end: 20190430
  9. ALLOPURINOLUM [Concomitant]
     Route: 048
     Dates: start: 20190521, end: 20190521
  10. ALLOPURINOLUM [Concomitant]
     Route: 048
     Dates: start: 20190530, end: 20190605
  11. ALLUPOL [Concomitant]
     Active Substance: ALLOPURINOL
     Indication: PROPHYLAXIS
     Route: 048
     Dates: start: 201905, end: 20190520
  12. BERODUAL N [Concomitant]
     Active Substance: FENOTEROL HYDROBROMIDE\IPRATROPIUM BROMIDE
     Indication: PNEUMONIA
     Dates: start: 20190726, end: 20190731
  13. RITUXIMAB. [Suspect]
     Active Substance: RITUXIMAB
     Indication: DIFFUSE LARGE B-CELL LYMPHOMA
     Dosage: AT 375 MILLIGRAMS PER SQUARE METER (MG/M^2) IV, .?DATE OF MOST RECENT DOSE OF RITUXIMAB (855.0 MG) P
     Route: 042
     Dates: start: 20190410
  14. CLEMASTINUM [Concomitant]
     Active Substance: CLEMASTINE FUMARATE
     Route: 042
     Dates: start: 20190521, end: 20190521
  15. DEXAVEN [Concomitant]
     Active Substance: DEXAMETHASONE
     Route: 042
     Dates: start: 20190430, end: 20190430
  16. ALLOPURINOLUM [Concomitant]
     Route: 048
     Dates: start: 20190529, end: 20190529
  17. LONQUEX [Concomitant]
     Active Substance: LIPEGFILGRASTIM
     Route: 058
     Dates: start: 20190522, end: 20190522
  18. GLUCOSE [Concomitant]
     Active Substance: DEXTROSE
     Indication: PROPHYLAXIS
     Route: 042
     Dates: start: 20190605, end: 20190605
  19. LACTULOSUM [Concomitant]
     Indication: CONSTIPATION
     Route: 048
     Dates: start: 20190726, end: 20190727
  20. AMLODIPINUM [Concomitant]
     Indication: OEDEMA PERIPHERAL
     Route: 048
     Dates: start: 20190731
  21. PLACEBO [Suspect]
     Active Substance: UNSPECIFIED INGREDIENT
     Indication: DIFFUSE LARGE B-CELL LYMPHOMA
     Dosage: DATE OF MOST RECENT DOSE OF BLINDED VINCRISTINE PRIOR TO SAE ONSET WAS ON 30/APR/2019.
     Route: 042
     Dates: start: 20190411
  22. DIURED [Concomitant]
     Indication: HYPERTENSION
     Route: 048
     Dates: start: 1999
  23. PRADAXA [Concomitant]
     Active Substance: DABIGATRAN ETEXILATE MESYLATE
     Indication: ATRIAL FIBRILLATION
     Route: 048
     Dates: start: 2014, end: 20190529
  24. CLEMASTINUM [Concomitant]
     Active Substance: CLEMASTINE FUMARATE
     Indication: PROPHYLAXIS
     Route: 042
     Dates: start: 20190430, end: 20190430
  25. SALINE [SODIUM CHLORIDE] [Concomitant]
     Active Substance: SODIUM CHLORIDE
     Indication: PROPHYLAXIS
     Route: 042
     Dates: start: 20190703, end: 20190705
  26. SALINE [SODIUM CHLORIDE] [Concomitant]
     Active Substance: SODIUM CHLORIDE
     Dosage: ONE AMPULE OF 10% NACL
     Route: 042
     Dates: start: 20190705, end: 20190707
  27. ALLOPURINOLUM [Concomitant]
     Route: 048
     Dates: start: 20190722, end: 20190724
  28. HYDROXYZINUM [Concomitant]
     Active Substance: HYDROXYZINE HYDROCHLORIDE
     Indication: INSOMNIA
     Route: 048
     Dates: start: 20190722, end: 20190724
  29. GLUCOSE [Concomitant]
     Active Substance: DEXTROSE
     Indication: ACUTE KIDNEY INJURY
     Route: 042
     Dates: start: 20190703, end: 20190707
  30. CLEXANE [Concomitant]
     Active Substance: ENOXAPARIN SODIUM
     Indication: ATRIAL FIBRILLATION
     Route: 058
     Dates: start: 20190605
  31. PARACETAMOLUM [Concomitant]
     Active Substance: ACETAMINOPHEN
     Route: 048
     Dates: start: 20190521, end: 20190521
  32. ZOFRAN [Concomitant]
     Active Substance: ONDANSETRON HYDROCHLORIDE
     Route: 042
     Dates: start: 20190521, end: 20190521
  33. LONQUEX [Concomitant]
     Active Substance: LIPEGFILGRASTIM
     Route: 058
     Dates: start: 20190612, end: 20190612
  34. ACCOFIL [Concomitant]
     Active Substance: FILGRASTIM
     Route: 058
     Dates: start: 20190530, end: 20190531
  35. NEULASTA [Concomitant]
     Active Substance: PEGFILGRASTIM
     Indication: PROPHYLAXIS
     Route: 058
     Dates: start: 20190501, end: 20190501
  36. GLYCEROLI TRINITRAS [Concomitant]
     Indication: CONSTIPATION
     Route: 054
     Dates: start: 20190727, end: 20190729
  37. METOCLOPRAMIDUM [Concomitant]
     Indication: CONSTIPATION
     Route: 042
     Dates: start: 20190724, end: 20190725
  38. DROTAVERINE HYDROCHLORIDE [Concomitant]
     Active Substance: DROTAVERINE HYDROCHLORIDE
     Indication: CONSTIPATION
     Route: 042
     Dates: start: 20190727, end: 20190727
  39. BETO ZK [Concomitant]
     Active Substance: METOPROLOL SUCCINATE
     Indication: ATRIAL FIBRILLATION
     Route: 048
     Dates: start: 2014
  40. PARACETAMOLUM [Concomitant]
     Active Substance: ACETAMINOPHEN
     Indication: PREMEDICATION
     Route: 048
     Dates: start: 20190410, end: 20190411
  41. SALINE [SODIUM CHLORIDE] [Concomitant]
     Active Substance: SODIUM CHLORIDE
     Route: 042
     Dates: start: 20190605, end: 20190605
  42. SALINE [SODIUM CHLORIDE] [Concomitant]
     Active Substance: SODIUM CHLORIDE
     Dosage: ONE AMPULE OF 10% NACL
     Route: 042
     Dates: start: 20190722, end: 20190731
  43. KALDYUM [Concomitant]
     Active Substance: POTASSIUM CHLORIDE
     Indication: PROPHYLAXIS
     Route: 048
     Dates: start: 201905, end: 20190520
  44. KALIPOZ-PROLONGATUM [Concomitant]
     Active Substance: POTASSIUM CHLORIDE
     Route: 048
     Dates: start: 20190530, end: 20190605
  45. ALLOPURINOLUM [Concomitant]
     Indication: PROPHYLAXIS
     Route: 048
     Dates: start: 20190410, end: 20190411
  46. ALLOPURINOLUM [Concomitant]
     Route: 048
     Dates: start: 20190605, end: 20190610
  47. LONQUEX [Concomitant]
     Active Substance: LIPEGFILGRASTIM
     Indication: PROPHYLAXIS
     Route: 058
     Dates: start: 20190412, end: 20190412
  48. ENTEROL (POLAND) [Concomitant]
     Indication: DIARRHOEA
     Route: 048
     Dates: start: 201905, end: 20190520
  49. NYSTATYNA [Concomitant]
     Indication: PROPHYLAXIS
     Route: 048
     Dates: start: 201905, end: 20190520
  50. ALPRAGEN [Concomitant]
     Active Substance: ALPRAZOLAM
     Route: 048
     Dates: start: 20190529, end: 20190605
  51. CLEXANE [Concomitant]
     Active Substance: ENOXAPARIN SODIUM
     Indication: PROPHYLAXIS
     Route: 058
     Dates: start: 20190601, end: 20190602
  52. PREDNISONE. [Suspect]
     Active Substance: PREDNISONE
     Indication: DIFFUSE LARGE B-CELL LYMPHOMA
     Dosage: AT 100 MILLIGRAMS PER DAY (MG/DAY) ORALLY (PO) ON DAYS 1-5 OF EVERY 21-DAY CYCLE FOR 6 CYCLES. ?DATE
     Route: 048
     Dates: start: 20190410
  53. PRESTARIUM [Concomitant]
     Active Substance: PERINDOPRIL
     Indication: HYPERTENSION
     Route: 048
     Dates: start: 1999
  54. CLEMASTINUM [Concomitant]
     Active Substance: CLEMASTINE FUMARATE
     Indication: PREMEDICATION
     Route: 042
     Dates: start: 20190410, end: 20190411
  55. CLEMASTINUM [Concomitant]
     Active Substance: CLEMASTINE FUMARATE
     Dosage: 1 AMPULE
     Route: 042
     Dates: start: 20190602, end: 20190602
  56. DEXAVEN [Concomitant]
     Active Substance: DEXAMETHASONE
     Indication: PREMEDICATION
     Route: 042
     Dates: start: 20190410, end: 20190411
  57. ZOFRAN [Concomitant]
     Active Substance: ONDANSETRON HYDROCHLORIDE
     Route: 042
     Dates: start: 20190430, end: 20190430
  58. SALINE [SODIUM CHLORIDE] [Concomitant]
     Active Substance: SODIUM CHLORIDE
     Route: 042
     Dates: start: 20190611, end: 20190611
  59. METRONIDAZOLE. [Concomitant]
     Active Substance: METRONIDAZOLE
     Indication: DIARRHOEA
     Route: 065
     Dates: start: 201905, end: 201905
  60. HYDROXYZINUM [Concomitant]
     Active Substance: HYDROXYZINE HYDROCHLORIDE
     Indication: PROPHYLAXIS
     Route: 048
     Dates: start: 20190528, end: 20190531
  61. KLACID [Concomitant]
     Active Substance: CLARITHROMYCIN
     Indication: PNEUMONIA
     Route: 042
     Dates: start: 20190726, end: 20190731
  62. POLATUZUMAB VEDOTIN. [Suspect]
     Active Substance: POLATUZUMAB VEDOTIN
     Indication: DIFFUSE LARGE B-CELL LYMPHOMA
     Dosage: DATE OF MOST RECENT DOSE OF BLINDED POLATUZUMAB VEDOTIN (DOSE: 194.4 MG) PRIOR TO SAE ONSET WAS ON 3
     Route: 042
     Dates: start: 20190411
  63. CYCLOPHOSPHAMIDE. [Suspect]
     Active Substance: CYCLOPHOSPHAMIDE
     Indication: DIFFUSE LARGE B-CELL LYMPHOMA
     Dosage: DATE OF MOST RECENT DOSE OF CYCLOPHOSPHAMIDE PRIOR TO SAE ONSET WAS ON 30/APR/2019 AT 1710 MG IV
     Route: 042
     Dates: start: 20190411
  64. PARACETAMOLUM [Concomitant]
     Active Substance: ACETAMINOPHEN
     Route: 048
     Dates: start: 20190611, end: 20190611
  65. DEXAVEN [Concomitant]
     Active Substance: DEXAMETHASONE
     Route: 042
     Dates: start: 20190521, end: 20190521
  66. ACICLOVIRUM [Concomitant]
     Indication: INFECTION PROPHYLAXIS
     Route: 048
     Dates: start: 20190410
  67. ZOFRAN [Concomitant]
     Active Substance: ONDANSETRON HYDROCHLORIDE
     Route: 042
     Dates: start: 20190611, end: 20190611
  68. SALINE [SODIUM CHLORIDE] [Concomitant]
     Active Substance: SODIUM CHLORIDE
     Indication: ACUTE KIDNEY INJURY
     Route: 042
     Dates: start: 20190430, end: 20190430
  69. ALLOPURINOLUM [Concomitant]
     Route: 048
     Dates: start: 20190611, end: 20190611
  70. ALLOPURINOLUM [Concomitant]
     Route: 048
     Dates: start: 20190731
  71. ACCOFIL [Concomitant]
     Active Substance: FILGRASTIM
     Indication: NEUTROPENIA
     Route: 058
     Dates: start: 20190419, end: 20190423
  72. ACCOFIL [Concomitant]
     Active Substance: FILGRASTIM
     Route: 058
     Dates: start: 20190507, end: 20190509
  73. LORAZEPAM. [Concomitant]
     Active Substance: LORAZEPAM
     Indication: INSOMNIA
     Route: 048
     Dates: start: 20190723, end: 20190730
  74. MORPHINE [Concomitant]
     Active Substance: MORPHINE
     Indication: PNEUMONIA
     Route: 058
     Dates: start: 20190726, end: 20190729

REACTIONS (2)
  - Erysipelas [Recovered/Resolved]
  - Oedema peripheral [Not Recovered/Not Resolved]

NARRATIVE: CASE EVENT DATE: 20190419
